FAERS Safety Report 4580789-1 (Version None)
Quarter: 2005Q1

REPORT INFORMATION
  Report Type: 
  Country: None (occurrence: None)
  Receive Date: 20050127
  Receipt Date: 20040818
  Transmission Date: 20050727
  Serious: No
  Sender: FDA-Public Use
  Company Number: USA040875808

PATIENT
  Age: 4 Year
  Sex: Female
  Weight: 25 kg

DRUGS (1)
  1. STRATTERA [Suspect]
     Indication: ATTENTION DEFICIT/HYPERACTIVITY DISORDER
     Dosage: 25 MG/1 IN THE EVENING
     Dates: start: 20040601, end: 20040601

REACTIONS (4)
  - HEADACHE [None]
  - MOOD SWINGS [None]
  - SLEEP DISORDER [None]
  - STARING [None]
